FAERS Safety Report 14995037 (Version 2)
Quarter: 2018Q2

REPORT INFORMATION
  Report Type: Spontaneous
  Country: US (occurrence: US)
  Receive Date: 20180611
  Receipt Date: 20180612
  Transmission Date: 20180711
  Serious: Yes (Other)
  Sender: FDA-Public Use
  Company Number: US-BAUSCH-BL-2018-016118

PATIENT
  Age: 17 Year
  Sex: Male

DRUGS (1)
  1. METRONIDAZOLE. [Suspect]
     Active Substance: METRONIDAZOLE
     Indication: PRODUCT USED FOR UNKNOWN INDICATION
     Dosage: LONG-TERM USE OF METRONIDAZOLE
     Route: 065

REACTIONS (3)
  - Ataxia [Recovering/Resolving]
  - Mental status changes [Recovering/Resolving]
  - Neurotoxicity [Recovering/Resolving]
